FAERS Safety Report 6031292-3 (Version None)
Quarter: 2009Q1

REPORT INFORMATION
  Report Type: 
  Country: None (occurrence: None)
  Receive Date: 20090108
  Receipt Date: 20090102
  Transmission Date: 20090719
  Serious: Yes (Hospitalization)
  Sender: FDA-Public Use
  Company Number: US-BIOGENIDEC-203182

PATIENT
  Age: 49 Year
  Sex: Female

DRUGS (16)
  1. AVONEX [Suspect]
     Indication: MULTIPLE SCLEROSIS
     Route: 030
     Dates: start: 19990701, end: 20040801
  2. AVONEX [Suspect]
     Route: 030
     Dates: start: 20040808, end: 20071101
  3. LOPRESOR [Concomitant]
     Indication: DRUG USE FOR UNKNOWN INDICATION
  4. LASIX [Concomitant]
     Indication: DRUG USE FOR UNKNOWN INDICATION
  5. ALLEGRA [Concomitant]
     Indication: DRUG USE FOR UNKNOWN INDICATION
  6. NEURONTIN [Concomitant]
     Indication: DRUG USE FOR UNKNOWN INDICATION
  7. SOMA [Concomitant]
     Indication: DRUG USE FOR UNKNOWN INDICATION
  8. POTASSIUM CHLORIDE [Concomitant]
     Indication: DRUG USE FOR UNKNOWN INDICATION
  9. DEPAKOTE ER [Concomitant]
     Indication: DRUG USE FOR UNKNOWN INDICATION
  10. VICODIN [Concomitant]
     Indication: DRUG USE FOR UNKNOWN INDICATION
  11. CELEBREX [Concomitant]
     Indication: DRUG USE FOR UNKNOWN INDICATION
  12. VALIUM [Concomitant]
     Indication: DRUG USE FOR UNKNOWN INDICATION
  13. MS CONTIN [Concomitant]
     Indication: DRUG USE FOR UNKNOWN INDICATION
  14. LIPITOR [Concomitant]
     Indication: DRUG USE FOR UNKNOWN INDICATION
  15. PLAVIX [Concomitant]
     Indication: DRUG USE FOR UNKNOWN INDICATION
  16. SYNTHROID [Concomitant]
     Indication: DRUG USE FOR UNKNOWN INDICATION

REACTIONS (2)
  - BALANCE DISORDER [None]
  - PULMONARY EMBOLISM [None]
